FAERS Safety Report 7092488-5 (Version None)
Quarter: 2010Q4

REPORT INFORMATION
  Report Type: 
  Country: None (occurrence: None)
  Receive Date: 20101108
  Receipt Date: 20101108
  Transmission Date: 20110411
  Serious: No
  Sender: FDA-Public Use
  Company Number: None

PATIENT
  Age: 48 Year
  Sex: Female

DRUGS (1)
  1. LIDOCAINE HCL 0.1% AND DEXTROSE 5% [Suspect]
     Dosage: 5ML ONCE SUBCUTANEOUS
     Route: 058
     Dates: start: 20101029, end: 20101029

REACTIONS (5)
  - COUGH [None]
  - FLUSHING [None]
  - NAUSEA [None]
  - SKIN WARM [None]
  - THROAT TIGHTNESS [None]
